FAERS Safety Report 5223073-5 (Version None)
Quarter: 2007Q1

REPORT INFORMATION
  Report Type: 
  Country: None (occurrence: None)
  Receive Date: 20070129
  Receipt Date: 20070118
  Transmission Date: 20070707
  Serious: Yes (Other)
  Sender: FDA-Public Use
  Company Number: SE-PFIZER INC-2007005149

PATIENT
  Sex: Female

DRUGS (16)
  1. LYRICA [Suspect]
     Indication: TRIGEMINAL NEURALGIA
     Route: 048
     Dates: start: 20061006, end: 20061101
  2. OPTINATE SEPTIMUM [Concomitant]
     Route: 048
  3. ATROVENT [Concomitant]
  4. BETAPRED [Concomitant]
     Route: 048
  5. ISOPTO-PLAIN [Concomitant]
     Route: 047
  6. ORSTANORM [Concomitant]
     Route: 048
  7. ALVEDON [Concomitant]
     Route: 048
  8. BRICANYL [Concomitant]
     Route: 048
  9. ALL OTHER THERAPEUTIC PRODUCTS [Concomitant]
     Route: 048
  10. PULMICORT [Concomitant]
     Route: 048
  11. ORUDIS [Concomitant]
  12. PREDNISOLONE [Concomitant]
  13. ACETYLCYSTEINE [Concomitant]
  14. CALCICHEW-D3 [Concomitant]
     Route: 048
  15. CIPRAM [Concomitant]
     Route: 048
  16. REMICADE [Concomitant]

REACTIONS (4)
  - DRUG WITHDRAWAL SYNDROME [None]
  - HEARING IMPAIRED [None]
  - HYPERHIDROSIS [None]
  - PYREXIA [None]
